FAERS Safety Report 8229684-7 (Version None)
Quarter: 2012Q1

REPORT INFORMATION
  Report Type: 
  Country: None (occurrence: None)
  Receive Date: 20120322
  Receipt Date: 20120319
  Transmission Date: 20120608
  Serious: Yes (Life-Threatening, Hospitalization)
  Sender: FDA-Public Use
  Company Number: PHHY2011BE101885

PATIENT
  Sex: Female

DRUGS (4)
  1. EXTAVIA [Suspect]
     Indication: MULTIPLE SCLEROSIS
     Dosage: 250 UG DAILY
     Route: 058
     Dates: start: 20110816, end: 20111101
  2. TRAMADOL HCL [Concomitant]
     Dosage: UNK UKN, UNK
  3. HORMONES [Concomitant]
     Indication: MENOPAUSE
     Dosage: UNK UKN, UNK
  4. ALDACTAZINE [Concomitant]
     Indication: HYPERTENSION
     Dosage: UNK UKN, UNK

REACTIONS (9)
  - ANGINA PECTORIS [None]
  - PAIN [None]
  - NAUSEA [None]
  - VENTRICULAR EXTRASYSTOLES [None]
  - ACUTE MYOCARDIAL INFARCTION [None]
  - PALLOR [None]
  - PAIN IN EXTREMITY [None]
  - CHEST PAIN [None]
  - HYPERHIDROSIS [None]
